FAERS Safety Report 9885726 (Version 2)
Quarter: 2014Q1

REPORT INFORMATION
  Report Type: Spontaneous
  Country: BR (occurrence: BR)
  Receive Date: 20140210
  Receipt Date: 20140310
  Transmission Date: 20141002
  Serious: Yes (Other)
  Sender: FDA-Public Use
  Company Number: PHHY2014BR015618

PATIENT
  Sex: Male
  Weight: 132 kg

DRUGS (2)
  1. FORASEQ [Suspect]
     Indication: ASTHMA
     Dosage: 1 DF (1 CAPSULE FOR EACH TREATMENT), DAILY
     Route: 055
  2. GLIFAGE [Suspect]
     Indication: DIABETES MELLITUS
     Dosage: 2 DF, DAILY
     Route: 048

REACTIONS (1)
  - Blood glucose increased [Not Recovered/Not Resolved]
